FAERS Safety Report 9643093 (Version 1)
Quarter: 2013Q4

REPORT INFORMATION
  Report Type: Spontaneous
  Country: FR (occurrence: FR)
  Receive Date: 20131024
  Receipt Date: 20131024
  Transmission Date: 20140711
  Serious: Yes (Hospitalization)
  Sender: FDA-Public Use
  Company Number: FR-JNJFOC-20131011519

PATIENT
  Age: 58 Year
  Sex: Female

DRUGS (9)
  1. XARELTO [Suspect]
     Indication: PRODUCT USED FOR UNKNOWN INDICATION
     Route: 048
     Dates: start: 20130822, end: 20130827
  2. KETOPROFEN [Suspect]
     Indication: PRODUCT USED FOR UNKNOWN INDICATION
     Route: 048
     Dates: start: 20130823
  3. EDUCTYL [Concomitant]
     Route: 065
  4. ACUPAN [Concomitant]
     Route: 065
  5. LEXOMIL [Concomitant]
     Route: 065
  6. OXYCONTIN [Concomitant]
     Route: 065
  7. APROVEL [Concomitant]
     Route: 065
  8. EFFEXOR [Concomitant]
     Route: 065
  9. OXYCODONE HYDROCHLORIDE [Concomitant]
     Route: 065

REACTIONS (2)
  - Paraplegia [Not Recovered/Not Resolved]
  - Spinal subdural haematoma [Recovered/Resolved with Sequelae]
